FAERS Safety Report 17519024 (Version 1)
Quarter: 2020Q1

REPORT INFORMATION
  Report Type: Spontaneous
  Country: US (occurrence: US)
  Receive Date: 20200310
  Receipt Date: 20200310
  Transmission Date: 20200409
  Serious: No
  Sender: FDA-Public Use
  Company Number: US-AUROBINDO-AUR-APL-2019-106528

PATIENT
  Age: 51 Year
  Sex: Female
  Weight: 84 kg

DRUGS (4)
  1. OMEPRAZOLE. [Concomitant]
     Active Substance: OMEPRAZOLE
     Indication: PRODUCT USED FOR UNKNOWN INDICATION
     Dosage: 20 MILLIGRAM, ONCE A DAY
     Route: 065
  2. SUMATRIPTAN+NAPROXEN SODIUM TABLETS 85MG/500MG [Suspect]
     Active Substance: NAPROXEN SODIUM\SUMATRIPTAN SUCCINATE
     Dosage: 2 DOSAGE FORM
     Route: 065
     Dates: start: 20191215
  3. SUMATRIPTAN+NAPROXEN SODIUM TABLETS 85MG/500MG [Suspect]
     Active Substance: NAPROXEN SODIUM\SUMATRIPTAN SUCCINATE
     Dosage: 2 DOSAGE FORM FOR 02 DAYS EVERY MONTH
     Route: 065
     Dates: start: 20191214, end: 20191214
  4. SUMATRIPTAN+NAPROXEN SODIUM TABLETS 85MG/500MG [Suspect]
     Active Substance: NAPROXEN SODIUM\SUMATRIPTAN SUCCINATE
     Indication: MIGRAINE
     Dosage: UNK, SINCE 02 YEARS (OF 02 TABLETS FOR 02 DAYS FOR EVERY MONTH)
     Route: 065

REACTIONS (2)
  - Drug ineffective [Unknown]
  - Product quality issue [Unknown]
